FAERS Safety Report 12901479 (Version 2)
Quarter: 2016Q4

REPORT INFORMATION
  Report Type: Spontaneous
  Country: US (occurrence: US)
  Receive Date: 20161102
  Receipt Date: 20161225
  Transmission Date: 20170207
  Serious: No
  Sender: FDA-Public Use
  Company Number: US-TAIHO ONCOLOGY INC-EU-2016-01633

PATIENT
  Sex: Male

DRUGS (1)
  1. LONSURF [Suspect]
     Active Substance: TIPIRACIL HYDROCHLORIDE\TRIFLURIDINE
     Indication: COLON CANCER
     Dosage: CYCLE 7
     Route: 048
     Dates: start: 20160623

REACTIONS (4)
  - Diarrhoea [Unknown]
  - Cough [Unknown]
  - Disease progression [Unknown]
  - Wheezing [Unknown]

NARRATIVE: CASE EVENT DATE: 2016
